FAERS Safety Report 22386761 (Version 1)
Quarter: 2023Q2

REPORT INFORMATION
  Report Type: Report from Study
  Country: US (occurrence: US)
  Receive Date: 20230531
  Receipt Date: 20230531
  Transmission Date: 20230721
  Serious: Yes (Hospitalization, Other)
  Sender: FDA-Public Use
  Company Number: US-ABBVIE-5180507

PATIENT
  Sex: Female
  Weight: 82 kg

DRUGS (10)
  1. VENCLEXTA [Suspect]
     Active Substance: VENETOCLAX
     Indication: Chronic lymphocytic leukaemia
     Dosage: FORM STRENGTH: 100 MILLIGRAM
     Route: 048
     Dates: start: 202205
  2. PROBIOTIC-10 [Concomitant]
     Indication: Product used for unknown indication
     Dosage: TAKE BY MOUTH ONCE.
     Route: 048
  3. GAZYVA [Suspect]
     Active Substance: OBINUTUZUMAB
     Indication: Chronic lymphocytic leukaemia
     Route: 065
     Dates: start: 202205
  4. ROCALTROL [Concomitant]
     Active Substance: CALCITRIOL
     Indication: Product used for unknown indication
     Dosage: FORM STRENGTH: 0.25 MICROGRAM
     Route: 048
  5. FOLATE SODIUM [Concomitant]
     Active Substance: FOLATE SODIUM
     Indication: Product used for unknown indication
     Dosage: 1 MILLIGRAMS
     Route: 048
  6. IDELALISIB [Suspect]
     Active Substance: IDELALISIB
     Indication: Product used for unknown indication
     Route: 048
  7. RITUXAN [Suspect]
     Active Substance: RITUXIMAB
     Indication: Chronic lymphocytic leukaemia
     Dosage: COMPLETED 8/8 TREATMENTS ON 22-NOV-2017
     Route: 042
     Dates: start: 20170613
  8. DIOVAN [Concomitant]
     Active Substance: VALSARTAN
     Indication: Product used for unknown indication
     Route: 048
  9. CYANOCOBALAMIN [Concomitant]
     Active Substance: CYANOCOBALAMIN
     Indication: Product used for unknown indication
     Dosage: FORM STRENGTH: 500 MICROGRAM
     Route: 048
  10. CALCIUM CARBONATE [Concomitant]
     Active Substance: CALCIUM CARBONATE
     Indication: Product used for unknown indication
     Dosage: FORM STRENGTH: 648
     Route: 048

REACTIONS (25)
  - Neutropenia [Unknown]
  - Acute kidney injury [Unknown]
  - Hypothyroidism [Unknown]
  - Thrombocytosis [Unknown]
  - Heart rate abnormal [Unknown]
  - Cardiac failure [Unknown]
  - Rash [Unknown]
  - White blood cell count increased [Not Recovered/Not Resolved]
  - Lymphocyte count increased [Not Recovered/Not Resolved]
  - Infection [Unknown]
  - Lymphadenopathy [Unknown]
  - Leukocytosis [Unknown]
  - Upper respiratory tract infection [Unknown]
  - Rash maculo-papular [Unknown]
  - Anaemia [Unknown]
  - Cytopenia [Unknown]
  - Tumour lysis syndrome [Unknown]
  - Macrocytosis [Unknown]
  - Gastrointestinal toxicity [Unknown]
  - Productive cough [Unknown]
  - Flank pain [Unknown]
  - Skin toxicity [Unknown]
  - Palpitations [Unknown]
  - Pruritus [Unknown]
  - Urticaria [Unknown]
